FAERS Safety Report 5260485-8 (Version None)
Quarter: 2007Q1

REPORT INFORMATION
  Report Type: 
  Country: None (occurrence: None)
  Receive Date: 20070309
  Receipt Date: 20061002
  Transmission Date: 20070707
  Serious: No
  Sender: FDA-Public Use
  Company Number: US-GLAXOSMITHKLINE-A0621899A

PATIENT
  Age: 60 Year
  Sex: Male

DRUGS (1)
  1. NICORETTE (MINT) [Suspect]
     Dates: start: 20060928, end: 20060928

REACTIONS (2)
  - DRUG INEFFECTIVE [None]
  - GASTROINTESTINAL PAIN [None]
